FAERS Safety Report 7244411-8 (Version None)
Quarter: 2011Q1

REPORT INFORMATION
  Report Type: 
  Country: None (occurrence: None)
  Receive Date: 20110125
  Receipt Date: 20110114
  Transmission Date: 20110831
  Serious: Yes (Other)
  Sender: FDA-Public Use
  Company Number: PHEH2008US08144

PATIENT
  Sex: Male

DRUGS (26)
  1. TENORMIN [Concomitant]
     Dosage: 25 MG, UNK
  2. FOLIC ACID [Concomitant]
  3. ATENOLOL [Concomitant]
  4. VITAMIN B COMPLEX CAP [Concomitant]
     Dosage: UNK
  5. CEPHALEXIN [Concomitant]
  6. HYTRIN [Concomitant]
  7. LOTENSIN [Concomitant]
  8. DIOVAN [Concomitant]
  9. ZOMETA [Suspect]
     Dosage: 4 MG
     Dates: start: 20050415
  10. PLAVIX [Concomitant]
  11. ASPIRIN [Concomitant]
     Dosage: 81 MG, UNK
  12. AREDIA [Suspect]
     Dosage: 90 MG, UNK
     Dates: start: 20001115
  13. FLOMAX [Concomitant]
  14. PRILOSEC [Concomitant]
  15. ASPIRIN [Concomitant]
  16. NORVASC [Concomitant]
     Dosage: 5 MG, QD
  17. DECADRON [Concomitant]
  18. MEDROL [Concomitant]
  19. AUGMENTIN '125' [Concomitant]
     Dosage: UNK
  20. AREDIA [Suspect]
     Dosage: 120 MG, UNK
     Dates: start: 19980506, end: 20001012
  21. CELEBREX [Concomitant]
  22. LIPITOR [Concomitant]
  23. AMOXICILLIN [Concomitant]
  24. VIOXX [Concomitant]
  25. CIPRO [Concomitant]
  26. PROSCAR [Concomitant]
     Dosage: 5 MG, QD

REACTIONS (31)
  - BASAL CELL CARCINOMA [None]
  - DISABILITY [None]
  - VASCULAR CALCIFICATION [None]
  - NEOPLASM MALIGNANT [None]
  - CEREBROVASCULAR ACCIDENT [None]
  - OSTEONECROSIS OF JAW [None]
  - PAIN [None]
  - ANXIETY [None]
  - HYPERTROPHY [None]
  - SENSITIVITY OF TEETH [None]
  - KYPHOSIS [None]
  - INTERVERTEBRAL DISC PROTRUSION [None]
  - TENDON RUPTURE [None]
  - SQUAMOUS CELL CARCINOMA [None]
  - INJURY [None]
  - HEPATIC STEATOSIS [None]
  - EYE NAEVUS [None]
  - ANHEDONIA [None]
  - SEBORRHOEIC DERMATITIS [None]
  - MONOCLONAL GAMMOPATHY [None]
  - HYPERTENSION [None]
  - CONCOMITANT DISEASE PROGRESSION [None]
  - HIATUS HERNIA [None]
  - CONJUNCTIVITIS [None]
  - OSTEOARTHRITIS [None]
  - BLEPHARITIS [None]
  - ACTINIC KERATOSIS [None]
  - METASTASES TO SPINE [None]
  - PROSTATIC SPECIFIC ANTIGEN INCREASED [None]
  - NEPHROLITHIASIS [None]
  - IRITIS [None]
